FAERS Safety Report 9540421 (Version 3)
Quarter: 2013Q4

REPORT INFORMATION
  Report Type: Report from Study
  Country: BR (occurrence: BR)
  Receive Date: 20130920
  Receipt Date: 20131211
  Transmission Date: 20140711
  Serious: Yes (Hospitalization, Disabling, Other)
  Sender: FDA-Public Use
  Company Number: BR-BAYER-2012-043289

PATIENT
  Age: 36 Year
  Sex: Female

DRUGS (8)
  1. BETAFERON [Suspect]
     Indication: RELAPSING-REMITTING MULTIPLE SCLEROSIS
     Dosage: 1 ML, QOD
     Route: 058
     Dates: start: 201111
  2. BETAJECT COMFORT [Suspect]
     Indication: DEVICE THERAPY
     Dosage: 1 ML, QOD
     Dates: start: 201112
  3. CITALOPRAM [Concomitant]
     Indication: DEPRESSION
     Dosage: DAILY DOSE 2 DF
     Route: 048
     Dates: end: 201201
  4. ZOLPIDEM [Concomitant]
     Indication: INSOMNIA
     Dosage: 1 DF, QD
     Route: 048
  5. FLUOXETIN [Concomitant]
     Indication: DEPRESSION
     Dosage: 1 DF, QD
     Route: 048
  6. CLONAZEPAM [Concomitant]
     Indication: SLEEP DISORDER
     Dosage: 2 DF, QD
     Dates: start: 2010
  7. TOPIRAMATE [Concomitant]
     Indication: HEADACHE
     Dosage: 4 DF, QD
     Dates: start: 2010
  8. TOPIRAMATE [Concomitant]
     Indication: PAIN

REACTIONS (28)
  - Injection site necrosis [Recovering/Resolving]
  - Pain [Recovering/Resolving]
  - Arthralgia [Not Recovered/Not Resolved]
  - Headache [Recovering/Resolving]
  - Polymenorrhoea [Not Recovered/Not Resolved]
  - Injection site rash [Recovering/Resolving]
  - Asthenia [Not Recovered/Not Resolved]
  - Fatigue [Not Recovered/Not Resolved]
  - Myalgia [Not Recovered/Not Resolved]
  - Abasia [Not Recovered/Not Resolved]
  - Device malfunction [Unknown]
  - Injection site pain [Recovered/Resolved]
  - Injection site reaction [Recovered/Resolved]
  - Injection site discolouration [Not Recovered/Not Resolved]
  - Injection site infection [Recovered/Resolved]
  - Injection site erythema [Recovered/Resolved]
  - Injection site scab [Recovered/Resolved]
  - Central nervous system lesion [Unknown]
  - Multiple sclerosis relapse [Recovering/Resolving]
  - Dyspnoea [Recovering/Resolving]
  - Oxygen saturation decreased [Recovering/Resolving]
  - Social phobia [Not Recovered/Not Resolved]
  - Device malfunction [Unknown]
  - Injection site pain [Recovered/Resolved]
  - Injection site reaction [Recovered/Resolved]
  - Injection site infection [Recovered/Resolved]
  - Injection site erythema [Recovered/Resolved]
  - Injection site scab [Recovered/Resolved]
